FAERS Safety Report 5728963-2 (Version None)
Quarter: 2008Q2

REPORT INFORMATION
  Report Type: 
  Country: None (occurrence: None)
  Receive Date: 20080506
  Receipt Date: 20080501
  Transmission Date: 20081010
  Serious: Yes (Life-Threatening)
  Sender: FDA-Public Use
  Company Number: JP-JNJFOC-20080500293

PATIENT
  Age: 82 Year
  Sex: Female

DRUGS (8)
  1. ITRACONAZOLE [Suspect]
     Indication: FUNGAL INFECTION
     Route: 041
  2. ITRACONAZOLE [Suspect]
     Indication: FEBRILE NEUTROPENIA
     Route: 041
  3. SIGMART [Concomitant]
     Route: 042
  4. NEOPAREN [Concomitant]
     Route: 042
  5. VANCOMYCIN [Concomitant]
     Route: 042
  6. CIPROFLOXACIN [Concomitant]
     Route: 042
  7. ARODATE [Concomitant]
     Route: 042
  8. HANP [Concomitant]
     Route: 042

REACTIONS (2)
  - BLOOD PRESSURE DECREASED [None]
  - CARDIAC ARREST [None]
